FAERS Safety Report 8043672-5 (Version None)
Quarter: 2012Q1

REPORT INFORMATION
  Report Type: 
  Country: None (occurrence: None)
  Receive Date: 20120112
  Receipt Date: 20120104
  Transmission Date: 20120608
  Serious: Yes (Hospitalization)
  Sender: FDA-Public Use
  Company Number: FR-MERCK-1201FRA00017

PATIENT
  Age: 80 Year
  Sex: Female
  Weight: 34 kg

DRUGS (14)
  1. PIRIBEDIL [Concomitant]
     Route: 065
  2. SACCHAROMYCES BOULARDII [Concomitant]
     Route: 065
  3. RIVASTIGMINE [Concomitant]
     Route: 065
  4. ENALAPRIL MALEATE [Concomitant]
     Route: 065
  5. SMECTITE AND VANILLA [Concomitant]
     Route: 065
  6. NIFLUMIC ACID [Concomitant]
     Route: 065
  7. BISOPROLOL FUMARATE [Concomitant]
     Route: 065
  8. ACETAMINOPHEN [Concomitant]
     Route: 065
  9. RACECADOTRIL [Concomitant]
     Indication: DIARRHOEA
     Route: 065
     Dates: start: 20111122
  10. FOLIC ACID [Concomitant]
     Route: 065
  11. SINEMET [Suspect]
     Indication: PARKINSON'S DISEASE
     Route: 048
     Dates: start: 20111201, end: 20111220
  12. DORZOLAMIDE HYDROCHLORIDE [Concomitant]
     Route: 065
  13. METRONIDAZOLE [Concomitant]
     Route: 065
     Dates: start: 20111201, end: 20111201
  14. MOCLOBEMIDE [Concomitant]
     Route: 065

REACTIONS (5)
  - FALL [None]
  - HAEMOLYTIC URAEMIC SYNDROME [None]
  - AGGRESSION [None]
  - URINARY TRACT INFECTION [None]
  - MULTI-ORGAN FAILURE [None]
